FAERS Safety Report 5463819-4 (Version None)
Quarter: 2007Q3

REPORT INFORMATION
  Report Type: 
  Country: None (occurrence: None)
  Receive Date: 20070919
  Receipt Date: 20070906
  Transmission Date: 20080115
  Serious: Yes (Hospitalization)
  Sender: FDA-Public Use
  Company Number: 2007VX002295

PATIENT
  Sex: Male

DRUGS (4)
  1. ZELAPAR [Suspect]
     Indication: PARKINSON'S DISEASE
     Dosage: 25 MG;QD;PO; 2.5 MG;QD;PO
     Route: 048
  2. STALEVO 100 [Concomitant]
  3. PARCOPA [Concomitant]
  4. NEURO [Concomitant]

REACTIONS (1)
  - BLOOD CREATINE PHOSPHOKINASE INCREASED [None]
